FAERS Safety Report 21471466 (Version 1)
Quarter: 2022Q4

REPORT INFORMATION
  Report Type: Spontaneous
  Country: US (occurrence: None)
  Receive Date: 20221018
  Receipt Date: 20221018
  Transmission Date: 20230113
  Serious: No
  Sender: FDA-Public Use
  Company Number: 2022A328665

PATIENT
  Sex: Male
  Weight: 103 kg

DRUGS (1)
  1. FARXIGA [Suspect]
     Active Substance: DAPAGLIFLOZIN PROPANEDIOL
     Indication: Renal disorder
     Route: 048

REACTIONS (5)
  - Sleep disorder [Recovering/Resolving]
  - Blood glucose increased [Unknown]
  - Weight decreased [Unknown]
  - Nocturia [Recovering/Resolving]
  - Pollakiuria [Recovering/Resolving]
